FAERS Safety Report 5811901-1 (Version None)
Quarter: 2008Q3

REPORT INFORMATION
  Report Type: 
  Country: None (occurrence: None)
  Receive Date: 20080716
  Receipt Date: 20080703
  Transmission Date: 20090109
  Serious: Yes (Life-Threatening, Hospitalization)
  Sender: FDA-Public Use
  Company Number: CH-ELI_LILLY_AND_COMPANY-CH200807000925

PATIENT
  Age: 24 Year
  Sex: Female

DRUGS (6)
  1. CYMBALTA [Suspect]
     Dosage: 60 TABLETS
     Route: 048
     Dates: start: 20080521, end: 20080521
  2. QUILONORM RETARD [Concomitant]
     Dosage: 24-188 TABLETS OF 300MG
     Route: 048
     Dates: start: 20080521, end: 20080521
  3. QUILONORM RETARD [Concomitant]
     Dosage: UNK, DAILY (1/D)
     Route: 065
  4. IMOVANE [Concomitant]
     Dosage: 60 TABLETS
     Route: 048
     Dates: start: 20080521, end: 20080521
  5. DEMETRIN [Concomitant]
     Dosage: 50 TABLETS
     Route: 048
     Dates: start: 20080521, end: 20080521
  6. SEROQUEL [Concomitant]
     Dosage: ONE TABLET
     Route: 048
     Dates: start: 20080521, end: 20080521

REACTIONS (11)
  - ALTERED STATE OF CONSCIOUSNESS [None]
  - CEREBELLAR SYNDROME [None]
  - ELECTROCARDIOGRAM QT PROLONGED [None]
  - ELECTROCARDIOGRAM T WAVE INVERSION [None]
  - HYPERREFLEXIA [None]
  - INTENTIONAL OVERDOSE [None]
  - NEPHROGENIC DIABETES INSIPIDUS [None]
  - NEUROLOGICAL SYMPTOM [None]
  - SUICIDE ATTEMPT [None]
  - THERAPEUTIC AGENT TOXICITY [None]
  - TREMOR [None]
